FAERS Safety Report 7671386-X (Version None)
Quarter: 2011Q3

REPORT INFORMATION
  Report Type: 
  Country: None (occurrence: None)
  Receive Date: 20110809
  Receipt Date: 20110803
  Transmission Date: 20111222
  Serious: Yes (Hospitalization)
  Sender: FDA-Public Use
  Company Number: US-GILEAD-2011-0040790

PATIENT
  Sex: Female

DRUGS (4)
  1. LETAIRIS [Suspect]
     Indication: LUNG DISORDER
  2. ADCIRCA [Concomitant]
  3. LETAIRIS [Suspect]
     Indication: PULMONARY ARTERIAL HYPERTENSION
     Route: 048
     Dates: start: 20100917
  4. LETAIRIS [Suspect]
     Indication: COAGULOPATHY

REACTIONS (2)
  - LUNG DISORDER [None]
  - URINARY TRACT INFECTION [None]
